FAERS Safety Report 20510033 (Version 2)
Quarter: 2022Q1

REPORT INFORMATION
  Report Type: Spontaneous
  Country: US (occurrence: US)
  Receive Date: 20220224
  Receipt Date: 20220302
  Transmission Date: 20220423
  Serious: Yes (Other)
  Sender: FDA-Public Use
  Company Number: US-drreddys-SPO/USA/22/0147069

PATIENT
  Age: 7 Decade
  Sex: Female

DRUGS (7)
  1. CINACALCET HYDROCHLORIDE [Interacting]
     Active Substance: CINACALCET HYDROCHLORIDE
     Indication: Blood calcium increased
     Dosage: 30 MG 3 TIMES IN A WEEK
     Route: 048
  2. CINACALCET HYDROCHLORIDE [Interacting]
     Active Substance: CINACALCET HYDROCHLORIDE
     Indication: Schizophrenia
     Route: 048
  3. CINACALCET HYDROCHLORIDE [Interacting]
     Active Substance: CINACALCET HYDROCHLORIDE
     Indication: Hyperparathyroidism
  4. RISPERIDONE [Suspect]
     Active Substance: RISPERIDONE
     Indication: Schizophrenia
  5. CLOZAPINE [Interacting]
     Active Substance: CLOZAPINE
     Indication: Schizophrenia
     Dosage: 400 MG DAILY (150 MG IN THE MORNING AD 250 MG AT BEDTIME)
  6. CLOZAPINE [Interacting]
     Active Substance: CLOZAPINE
     Indication: Hyperparathyroidism
     Dosage: 400 MG DAILY (150 MG IN THE MORNING AD 250 MG AT BEDTIME).
  7. HALOPERIDOL [Suspect]
     Active Substance: HALOPERIDOL
     Indication: Schizophrenia

REACTIONS (3)
  - Torticollis [Recovered/Resolved]
  - Drug interaction [Recovered/Resolved]
  - Drug ineffective [Unknown]
